FAERS Safety Report 9608905 (Version 1)
Quarter: 2013Q4

REPORT INFORMATION
  Report Type: Spontaneous
  Country: US (occurrence: None)
  Receive Date: 20131007
  Receipt Date: 20131007
  Transmission Date: 20140711
  Serious: Yes (Other)
  Sender: FDA-Public Use
  Company Number: None

PATIENT
  Age: 78 Year
  Sex: Female
  Weight: 50.8 kg

DRUGS (1)
  1. GAMMAGARD [Suspect]
     Indication: NEUROPATHY PERIPHERAL
     Route: 042
     Dates: start: 20130930

REACTIONS (5)
  - Headache [None]
  - Vomiting [None]
  - Asthenia [None]
  - Dizziness [None]
  - Malaise [None]
